FAERS Safety Report 9244756 (Version 1)
Quarter: 2013Q2

REPORT INFORMATION
  Report Type: Spontaneous
  Country: US (occurrence: US)
  Receive Date: 20130422
  Receipt Date: 20130422
  Transmission Date: 20140414
  Serious: Yes (Other)
  Sender: FDA-Public Use
  Company Number: US-JNJFOC-20130408474

PATIENT
  Sex: 0

DRUGS (2)
  1. REMICADE [Suspect]
     Indication: CHORIORETINOPATHY
     Route: 042
  2. PREDNISONE [Concomitant]
     Route: 065

REACTIONS (2)
  - Fungal infection [Unknown]
  - Off label use [Unknown]
